FAERS Safety Report 21819883 (Version 1)
Quarter: 2023Q1

REPORT INFORMATION
  Report Type: Report from Study
  Country: US (occurrence: US)
  Receive Date: 20230104
  Receipt Date: 20230104
  Transmission Date: 20230418
  Serious: No
  Sender: FDA-Public Use
  Company Number: US-ABBVIE-22K-163-4496817-00

PATIENT
  Sex: Male
  Weight: 160 kg

DRUGS (1)
  1. SKYRIZI [Suspect]
     Active Substance: RISANKIZUMAB-RZAA
     Indication: Psoriasis
     Dosage: SHOT ROUTE WAS LOWER ABDOMEN.
     Route: 058
     Dates: start: 20211108

REACTIONS (2)
  - Pain [Unknown]
  - Injection site pain [Recovering/Resolving]
